FAERS Safety Report 21184561 (Version 1)
Quarter: 2022Q3

REPORT INFORMATION
  Report Type: Spontaneous
  Country: FR (occurrence: FR)
  Receive Date: 20220808
  Receipt Date: 20220808
  Transmission Date: 20221027
  Serious: Yes (Life-Threatening, Other)
  Sender: FDA-Public Use
  Company Number: None

PATIENT
  Age: 93 Year
  Sex: Female

DRUGS (2)
  1. FLEBOGAMMA DIF [Suspect]
     Active Substance: HUMAN IMMUNOGLOBULIN G
     Indication: Cerebral haematoma
     Dosage: 5 GRAM
     Route: 042
     Dates: start: 20220429, end: 20220429
  2. FLEBOGAMMA DIF [Suspect]
     Active Substance: HUMAN IMMUNOGLOBULIN G
     Indication: Off label use
     Dosage: 20 GRAM
     Route: 042
     Dates: start: 20220429, end: 20220429

REACTIONS (4)
  - Peripheral ischaemia [Recovered/Resolved]
  - Eschar [Recovering/Resolving]
  - Sensory loss [Not Recovered/Not Resolved]
  - Motor dysfunction [Not Recovered/Not Resolved]

NARRATIVE: CASE EVENT DATE: 20220503
